FAERS Safety Report 9521763 (Version 2)
Quarter: 2013Q3

REPORT INFORMATION
  Report Type: Report from Study
  Country: US (occurrence: US)
  Receive Date: 20130913
  Receipt Date: 20130919
  Transmission Date: 20140515
  Serious: Yes (Hospitalization)
  Sender: FDA-Public Use
  Company Number: US-NAPPMUNDI-USA-2013-0106213

PATIENT
  Age: 63 Year
  Sex: Female

DRUGS (1)
  1. OXYCONTIN (NDA 22-272) [Suspect]
     Indication: LIGAMENT SPRAIN
     Dosage: 40 MG, BID
     Route: 048

REACTIONS (2)
  - Osteomyelitis [Recovered/Resolved]
  - Hyperkeratosis [Unknown]
